FAERS Safety Report 11794843 (Version 2)
Quarter: 2015Q4

REPORT INFORMATION
  Report Type: Report from Study
  Country: GB (occurrence: GB)
  Receive Date: 20151202
  Receipt Date: 20151214
  Transmission Date: 20160305
  Serious: Yes (Death, Hospitalization, Other)
  Sender: FDA-Public Use
  Company Number: GB-VIIV HEALTHCARE LIMITED-GB2015GSK171107

PATIENT
  Sex: Male

DRUGS (3)
  1. MARAVIROC [Suspect]
     Active Substance: MARAVIROC
     Indication: HIV INFECTION
     Dosage: UNK
     Dates: start: 20091210, end: 20091223
  2. SAQUINAVIR [Concomitant]
     Active Substance: SAQUINAVIR
     Dosage: UNK
  3. RITONAVIR. [Concomitant]
     Active Substance: RITONAVIR
     Dosage: UNK

REACTIONS (1)
  - Hepatic failure [Fatal]

NARRATIVE: CASE EVENT DATE: 20150623
